FAERS Safety Report 5051746-6 (Version None)
Quarter: 2006Q3

REPORT INFORMATION
  Report Type: 
  Country: None (occurrence: None)
  Receive Date: 20060710
  Receipt Date: 20060626
  Transmission Date: 20061208
  Serious: Yes (Hospitalization)
  Sender: FDA-Public Use
  Company Number: 2006-06-1098

PATIENT
  Age: 50 Year
  Sex: Male
  Weight: 86 kg

DRUGS (7)
  1. TEMODAR [Suspect]
     Indication: GLIOBLASTOMA MULTIFORME
     Dosage: 150 MG DAY ORAL
     Route: 048
     Dates: start: 20060417, end: 20060528
  2. DILANTIN [Concomitant]
  3. MEPRON [Concomitant]
  4. DECADRON [Concomitant]
  5. PRILOSEC [Concomitant]
  6. COLACE [Concomitant]
  7. RADIATION THERAPY [Concomitant]

REACTIONS (7)
  - CHILLS [None]
  - DEEP VEIN THROMBOSIS [None]
  - FEBRILE NEUTROPENIA [None]
  - FUNGAL RASH [None]
  - OEDEMA PERIPHERAL [None]
  - RASH [None]
  - STOMATITIS [None]
